FAERS Safety Report 6442423-5 (Version None)
Quarter: 2009Q4

REPORT INFORMATION
  Report Type: 
  Country: None (occurrence: None)
  Receive Date: 20091112
  Receipt Date: 20091104
  Transmission Date: 20100525
  Serious: Yes (Other)
  Sender: FDA-Public Use
  Company Number: SPV1-2009-01745

PATIENT
  Age: 58 Year
  Sex: Male

DRUGS (5)
  1. FOSRENOL [Suspect]
     Indication: HYPERPHOSPHATAEMIA
     Dosage: ORAL
     Route: 048
     Dates: start: 20090518
  2. ASPIRIN [Concomitant]
  3. OMEPRAZOLE [Concomitant]
  4. OLMESARTAN MEDOXOMIL [Concomitant]
  5. AMLODIPINE BESYLATE [Concomitant]

REACTIONS (4)
  - DRUG ADMINISTRATION ERROR [None]
  - DYSPHAGIA [None]
  - FOREIGN BODY [None]
  - VOMITING [None]
